FAERS Safety Report 8531734-5 (Version None)
Quarter: 2012Q3

REPORT INFORMATION
  Report Type: 
  Country: None (occurrence: None)
  Receive Date: 20120723
  Receipt Date: 20120531
  Transmission Date: 20120928
  Serious: No
  Sender: FDA-Public Use
  Company Number: US-009507513-1207USA007525

PATIENT

DRUGS (2)
  1. MIRALAX [Suspect]
     Indication: CONSTIPATION
     Dosage: UNK, QD
     Route: 048
     Dates: start: 20120401
  2. MIRALAX [Suspect]
     Dosage: 17 G, BID
     Route: 048

REACTIONS (2)
  - OVERDOSE [None]
  - ABDOMINAL PAIN [None]
